FAERS Safety Report 4596425-4 (Version None)
Quarter: 2005Q1

REPORT INFORMATION
  Report Type: 
  Country: None (occurrence: None)
  Receive Date: 20050228
  Receipt Date: 20050214
  Transmission Date: 20050727
  Serious: Yes (Other)
  Sender: FDA-Public Use
  Company Number: 2005030977

PATIENT
  Sex: Female

DRUGS (1)
  1. DEPO-PROVERA [Suspect]
     Indication: CONTRACEPTION
     Dosage: 150 MG (150 MG, EVERY THREE MONTHS), INTRAMUSCULAR
     Route: 030
     Dates: start: 20020101, end: 20020101

REACTIONS (5)
  - APPLICATION SITE PAIN [None]
  - APPLICATION SITE SWELLING [None]
  - BUTTOCK PAIN [None]
  - INJECTION SITE ABSCESS [None]
  - LOCALISED INFECTION [None]
